FAERS Safety Report 20662700 (Version 5)
Quarter: 2022Q3

REPORT INFORMATION
  Report Type: Report from Study
  Country: CH (occurrence: CH)
  Receive Date: 20220401
  Receipt Date: 20220715
  Transmission Date: 20221026
  Serious: Yes (Hospitalization, Other)
  Sender: FDA-Public Use
  Company Number: CH-ABBVIE-22K-151-4278043-00

PATIENT
  Age: 78 Year
  Sex: Male
  Weight: 63 kg

DRUGS (37)
  1. VENETOCLAX [Suspect]
     Active Substance: VENETOCLAX
     Indication: Acute myeloid leukaemia
     Route: 048
     Dates: start: 20220203, end: 20220203
  2. VENETOCLAX [Suspect]
     Active Substance: VENETOCLAX
     Route: 048
     Dates: start: 20220204, end: 20220204
  3. VENETOCLAX [Suspect]
     Active Substance: VENETOCLAX
     Route: 048
     Dates: start: 20220205, end: 20220223
  4. VENETOCLAX [Suspect]
     Active Substance: VENETOCLAX
     Route: 048
     Dates: start: 20220303, end: 20220323
  5. AZACITIDINE [Suspect]
     Active Substance: AZACITIDINE
     Indication: Product used for unknown indication
     Route: 065
     Dates: start: 20220203, end: 20220203
  6. AZACITIDINE [Suspect]
     Active Substance: AZACITIDINE
     Route: 065
     Dates: start: 20220204, end: 20220204
  7. AZACITIDINE [Suspect]
     Active Substance: AZACITIDINE
     Route: 065
     Dates: start: 20220205, end: 20220205
  8. AZACITIDINE [Suspect]
     Active Substance: AZACITIDINE
     Route: 065
     Dates: start: 20220206, end: 20220206
  9. AZACITIDINE [Suspect]
     Active Substance: AZACITIDINE
     Route: 065
     Dates: start: 20220207, end: 20220207
  10. AZACITIDINE [Suspect]
     Active Substance: AZACITIDINE
     Route: 065
     Dates: start: 20220303, end: 20220307
  11. ASPIRIN [Concomitant]
     Active Substance: ASPIRIN
     Indication: Product used for unknown indication
     Dosage: IF NEEDED
     Route: 048
     Dates: start: 20220203, end: 20220308
  12. TRIMETHOPRIM [Concomitant]
     Active Substance: TRIMETHOPRIM
     Indication: Product used for unknown indication
     Route: 048
     Dates: start: 20220203
  13. SULFAMETHOXAZOLUM [Concomitant]
     Indication: Product used for unknown indication
     Route: 048
     Dates: start: 20220203
  14. NEBIVOLOL [Concomitant]
     Active Substance: NEBIVOLOL
     Indication: Product used for unknown indication
     Route: 048
     Dates: start: 20220203, end: 20220308
  15. ESOMEPRAZOLE [Concomitant]
     Active Substance: ESOMEPRAZOLE
     Indication: Product used for unknown indication
     Route: 048
     Dates: start: 20220203
  16. VALACYCLOVIR [Concomitant]
     Active Substance: VALACYCLOVIR HYDROCHLORIDE
     Indication: Product used for unknown indication
     Route: 048
     Dates: start: 20220203
  17. CALCII CARBONAS [Concomitant]
     Indication: Product used for unknown indication
     Route: 048
     Dates: start: 20220207
  18. METOCLOPRAMIDE HYDROCHLORIDE [Concomitant]
     Active Substance: METOCLOPRAMIDE HYDROCHLORIDE
     Indication: Product used for unknown indication
     Route: 048
     Dates: start: 20220221
  19. MELATONIN [Concomitant]
     Active Substance: MELATONIN
     Indication: Product used for unknown indication
     Route: 048
     Dates: start: 20220207
  20. POTASSIUM CHLORIDE [Concomitant]
     Active Substance: POTASSIUM CHLORIDE
     Indication: Product used for unknown indication
     Route: 048
     Dates: start: 20220213
  21. TORSEMIDE [Concomitant]
     Active Substance: TORSEMIDE
     Indication: Product used for unknown indication
     Route: 048
     Dates: start: 20220222
  22. PIPERACILLIN SODIUM [Concomitant]
     Active Substance: PIPERACILLIN SODIUM
     Indication: Product used for unknown indication
     Route: 042
     Dates: start: 20220217, end: 20220302
  23. ACETAMINOPHEN [Concomitant]
     Active Substance: ACETAMINOPHEN
     Indication: Product used for unknown indication
     Dosage: AS NEEDED
     Route: 048
     Dates: start: 20220206, end: 202202
  24. ACETAMINOPHEN [Concomitant]
     Active Substance: ACETAMINOPHEN
     Route: 042
     Dates: start: 20220218, end: 20220228
  25. ENOXAPARIN SODIUM [Concomitant]
     Active Substance: ENOXAPARIN SODIUM
     Indication: Product used for unknown indication
     Route: 058
     Dates: start: 20220203, end: 20220207
  26. VALERIAN [Concomitant]
     Active Substance: VALERIAN
     Indication: Product used for unknown indication
     Dosage: AS NEEDED
     Route: 048
     Dates: start: 20220205, end: 20220307
  27. METAMIZOLE SODIUM [Concomitant]
     Active Substance: METAMIZOLE SODIUM
     Indication: Product used for unknown indication
     Dosage: AS NEEDED
     Route: 048
     Dates: start: 20220213, end: 202202
  28. METAMIZOLE SODIUM [Concomitant]
     Active Substance: METAMIZOLE SODIUM
     Dosage: AS NEEDED
     Route: 042
     Dates: start: 20220218, end: 20220227
  29. FUROSEMIDE [Concomitant]
     Active Substance: FUROSEMIDE
     Indication: Product used for unknown indication
     Dosage: AS NEEDED
     Route: 042
     Dates: start: 20220205, end: 20220223
  30. CEFAZOLINUM [Concomitant]
     Indication: Product used for unknown indication
     Route: 042
     Dates: start: 20220213, end: 20220213
  31. CEFAZOLINUM [Concomitant]
     Route: 042
     Dates: start: 20220214, end: 20220214
  32. ALLOPURINOL [Concomitant]
     Active Substance: ALLOPURINOL
     Indication: Product used for unknown indication
     Dates: start: 20220204
  33. POSACONAZOLE [Concomitant]
     Active Substance: POSACONAZOLE
     Indication: Product used for unknown indication
     Dates: start: 20220204
  34. HUMAN RED BLOOD CELL [Concomitant]
     Active Substance: HUMAN RED BLOOD CELL
     Indication: Product used for unknown indication
     Dosage: AS NEEDED
     Dates: start: 20220204, end: 20220310
  35. PLATELETS [Concomitant]
     Active Substance: HUMAN PLATELET, ALLOGENIC
     Indication: Product used for unknown indication
     Dosage: AS NEEDED
     Dates: start: 20220214, end: 20220310
  36. ONDANSETRON [Concomitant]
     Active Substance: ONDANSETRON
     Indication: Product used for unknown indication
     Dosage: AS NEEDED
     Dates: start: 20220203, end: 202203
  37. RESOURCE 2.0+FIBRE [Concomitant]
     Indication: Product used for unknown indication
     Dosage: NUTRITION DRINK ?AS NEEDED
     Route: 048
     Dates: start: 20220225, end: 20220228

REACTIONS (8)
  - Infection [Recovered/Resolved]
  - Febrile neutropenia [Recovered/Resolved]
  - Septic shock [Recovered/Resolved]
  - Neutropenic colitis [Recovered/Resolved with Sequelae]
  - Thrombocytopenia [Recovered/Resolved]
  - Febrile neutropenia [Recovered/Resolved]
  - Pneumonia fungal [Recovered/Resolved]
  - Anaemia [Recovered/Resolved]

NARRATIVE: CASE EVENT DATE: 20220204
